FAERS Safety Report 9919595 (Version 1)
Quarter: 2014Q1

REPORT INFORMATION
  Report Type: Spontaneous
  Country: US (occurrence: US)
  Receive Date: 20140224
  Receipt Date: 20140224
  Transmission Date: 20141002
  Serious: No
  Sender: FDA-Public Use
  Company Number: US-009507513-1402USA008207

PATIENT
  Age: 18 Year
  Sex: Female
  Weight: 81.63 kg

DRUGS (5)
  1. NEXPLANON [Suspect]
     Indication: CONTRACEPTION
     Dosage: UNK
     Route: 059
     Dates: start: 20131205
  2. ABILIFY [Concomitant]
  3. CELEXA [Concomitant]
  4. LAMOTRIGINE [Concomitant]
  5. IRON (UNSPECIFIED) [Concomitant]

REACTIONS (2)
  - Unintended pregnancy [Unknown]
  - Menstruation delayed [Unknown]
